FAERS Safety Report 5369376-5 (Version None)
Quarter: 2007Q2

REPORT INFORMATION
  Report Type: 
  Country: None (occurrence: None)
  Receive Date: 20070625
  Receipt Date: 20070418
  Transmission Date: 20071010
  Serious: Yes (Hospitalization)
  Sender: FDA-Public Use
  Company Number: US-ASTRAZENECA-2007UW07715

PATIENT

DRUGS (2)
  1. CRESTOR [Suspect]
     Route: 048
  2. UNKOWN MEDICATIONS [Concomitant]

REACTIONS (2)
  - MYALGIA [None]
  - RHABDOMYOLYSIS [None]
